FAERS Safety Report 10503390 (Version 1)
Quarter: 2014Q4

REPORT INFORMATION
  Report Type: Spontaneous
  Country: US (occurrence: US)
  Receive Date: 20141008
  Receipt Date: 20141008
  Transmission Date: 20150528
  Serious: Yes (Death, Hospitalization)
  Sender: FDA-Public Use
  Company Number: US-JNJFOC-20140925638

PATIENT
  Sex: Male

DRUGS (1)
  1. RISPERDAL [Suspect]
     Active Substance: RISPERIDONE
     Indication: PSYCHOTIC DISORDER DUE TO A GENERAL MEDICAL CONDITION
     Route: 065
     Dates: start: 2014

REACTIONS (5)
  - Condition aggravated [Fatal]
  - Urinary tract infection [Recovering/Resolving]
  - Eating disorder [Recovering/Resolving]
  - Hypersomnia [Recovering/Resolving]
  - Dysphagia [Recovering/Resolving]
